FAERS Safety Report 19491141 (Version 1)
Quarter: 2021Q3

REPORT INFORMATION
  Report Type: Other
  Country: KR (occurrence: KR)
  Receive Date: 20210705
  Receipt Date: 20210705
  Transmission Date: 20211014
  Serious: Yes (Death)
  Sender: FDA-Public Use
  Company Number: KR-ROCHE-2860296

PATIENT
  Age: 56 Year
  Sex: Male
  Weight: 42.1 kg

DRUGS (2)
  1. BEVACIZUMAB. [Suspect]
     Active Substance: BEVACIZUMAB
     Indication: HEPATOCELLULAR CARCINOMA
     Dosage: ON 18/MAR/2021, 07/APR/2021, 26/APR/2021, 21/MAY/2021 AND 08/JUN/2021 SHE RECEIVED SUBSEQUENT DOSE O
     Route: 042
     Dates: start: 20210225, end: 20210225
  2. ATEZOLIZUMAB. [Suspect]
     Active Substance: ATEZOLIZUMAB
     Indication: HEPATOCELLULAR CARCINOMA
     Dosage: ON 18/MAR/2021, 07/APR/2021, 26/APR/2021, 21/MAY/2021 AND 08/JUN/2021 SHE RECEIVED SUBSEQUENT DOSE O
     Route: 041
     Dates: start: 20210225, end: 20210225

REACTIONS (1)
  - Peritonitis [Fatal]

NARRATIVE: CASE EVENT DATE: 20210610
